FAERS Safety Report 10301524 (Version 1)
Quarter: 2014Q3

REPORT INFORMATION
  Report Type: Spontaneous
  Country: GB (occurrence: GB)
  Receive Date: 20140714
  Receipt Date: 20140714
  Transmission Date: 20150326
  Serious: Yes (Hospitalization)
  Sender: FDA-Public Use
  Company Number: GB-TEVA-493769ISR

PATIENT
  Age: 39 Year
  Sex: Female

DRUGS (4)
  1. LEVEMIR [Concomitant]
     Active Substance: INSULIN DETEMIR
     Indication: DIABETES MELLITUS
     Dosage: BASAL BOLUS, 15U ONCE A DAY
     Route: 065
  2. RUSCUS ACULEATUS [Suspect]
     Active Substance: RUSCUS ACULEATUS ROOT
     Indication: JOINT SWELLING
     Route: 048
  3. NOVORAPID [Concomitant]
     Active Substance: INSULIN ASPART
     Indication: DIABETES MELLITUS
     Dosage: BASAL BOLUS, 8U THREE TIMES A DAY
     Route: 065
  4. METFORMIN [Suspect]
     Active Substance: METFORMIN HYDROCHLORIDE
     Indication: DIABETES MELLITUS
     Dosage: 1000 MILLIGRAM DAILY;
     Route: 048

REACTIONS (17)
  - Blood urea increased [None]
  - Neutrophilia [None]
  - Base excess decreased [None]
  - Blood bicarbonate decreased [None]
  - Dehydration [Unknown]
  - Blood urine [None]
  - Blood potassium increased [None]
  - PO2 increased [None]
  - Diabetic ketoacidosis [Recovering/Resolving]
  - White blood cell count increased [None]
  - Blood pH decreased [None]
  - Vomiting [Unknown]
  - PCO2 decreased [None]
  - Blood lactic acid increased [None]
  - Heart rate increased [None]
  - Electrocardiogram T wave peaked [None]
  - Diarrhoea [Unknown]
